FAERS Safety Report 7555048-5 (Version None)
Quarter: 2011Q2

REPORT INFORMATION
  Report Type: 
  Country: None (occurrence: None)
  Receive Date: 20110617
  Receipt Date: 20110608
  Transmission Date: 20111010
  Serious: Yes (Hospitalization)
  Sender: FDA-Public Use
  Company Number: US-ASTRAZENECA-2011SE34953

PATIENT
  Age: 50 Year
  Sex: Female
  Weight: 81.2 kg

DRUGS (2)
  1. FOURTEEN OTHER MEDICATIONS [Concomitant]
  2. SEROQUEL XR [Suspect]
     Indication: BIPOLAR DISORDER
     Route: 048
     Dates: start: 20090101

REACTIONS (7)
  - CORONARY ARTERY OCCLUSION [None]
  - RECTAL HAEMORRHAGE [None]
  - CARDIAC ENZYMES INCREASED [None]
  - WEIGHT INCREASED [None]
  - ANGINA PECTORIS [None]
  - CORONARY ARTERIAL STENT INSERTION [None]
  - SYNCOPE [None]
